FAERS Safety Report 10665178 (Version 3)
Quarter: 2015Q1

REPORT INFORMATION
  Report Type: Spontaneous
  Country: US (occurrence: US)
  Receive Date: 20141219
  Receipt Date: 20150130
  Transmission Date: 20150720
  Serious: Yes (Death, Other)
  Sender: FDA-Public Use
  Company Number: US-INCYTE CORPORATION-2014IN003878

PATIENT
  Age: 77 Year
  Sex: Female
  Weight: 61.22 kg

DRUGS (6)
  1. TRAMADOL [Concomitant]
     Active Substance: TRAMADOL
  2. MORPHINE [Concomitant]
     Active Substance: MORPHINE
  3. WARFARIN [Concomitant]
     Active Substance: WARFARIN
  4. PROCRIT [Concomitant]
     Active Substance: ERYTHROPOIETIN
  5. LEVOFLOXACIN. [Concomitant]
     Active Substance: LEVOFLOXACIN
  6. JAKAFI [Suspect]
     Active Substance: RUXOLITINIB
     Indication: MYELOFIBROSIS
     Dosage: 10 MG, BID
     Route: 048

REACTIONS (2)
  - Sarcoma [Unknown]
  - Death [Fatal]

NARRATIVE: CASE EVENT DATE: 20141205
